FAERS Safety Report 23867056 (Version 1)
Quarter: 2024Q2

REPORT INFORMATION
  Report Type: Spontaneous
  Country: NL (occurrence: None)
  Receive Date: 20240517
  Receipt Date: 20240517
  Transmission Date: 20240716
  Serious: Yes (Other)
  Sender: FDA-Public Use
  Company Number: 2024A113793

PATIENT
  Age: 41 Year
  Sex: Male
  Weight: 70 kg

DRUGS (5)
  1. QUETIAPINE [Suspect]
     Active Substance: QUETIAPINE
     Indication: Depression
     Dosage: 1X DAILY IN THE EVENING
     Dates: start: 20211004, end: 20240204
  2. QUETIAPINE [Suspect]
     Active Substance: QUETIAPINE
     Indication: Insomnia
     Dosage: 1X DAILY IN THE EVENING
     Dates: start: 20211004, end: 20240204
  3. QUETIAPINE [Suspect]
     Active Substance: QUETIAPINE
     Indication: Mood swings
     Dosage: 1X DAILY IN THE EVENING
     Dates: start: 20211004, end: 20240204
  4. WELLBUTRIN XL [Interacting]
     Active Substance: BUPROPION HYDROCHLORIDE
     Indication: Antidepressant therapy
     Dosage: 1X DAILY IN THE EVENING
     Route: 048
     Dates: start: 20240116, end: 20240223
  5. ZOPICLONE [Concomitant]
     Active Substance: ZOPICLONE

REACTIONS (13)
  - Neuropathy peripheral [Recovering/Resolving]
  - Dizziness [Recovering/Resolving]
  - Hyperhidrosis [Recovering/Resolving]
  - Dry skin [Recovering/Resolving]
  - Tension [Recovering/Resolving]
  - Suspiciousness [Recovering/Resolving]
  - Hypomania [Recovering/Resolving]
  - Dyspnoea [Recovering/Resolving]
  - Drug interaction [Recovering/Resolving]
  - Tachycardia [Recovering/Resolving]
  - Impulsive behaviour [Recovering/Resolving]
  - Dry mouth [Recovering/Resolving]
  - Product use in unapproved indication [Recovered/Resolved]

NARRATIVE: CASE EVENT DATE: 20211004
